FAERS Safety Report 17105543 (Version 1)
Quarter: 2019Q4

REPORT INFORMATION
  Report Type: Spontaneous
  Country: GR (occurrence: GR)
  Receive Date: 20191203
  Receipt Date: 20191203
  Transmission Date: 20200122
  Serious: Yes (Other)
  Sender: FDA-Public Use
  Company Number: GR-PFIZER INC-2019514866

PATIENT
  Age: 55 Year
  Sex: Female

DRUGS (3)
  1. ZINADOL [Suspect]
     Active Substance: CEFUROXIME AXETIL
     Indication: LIMB OPERATION
     Dosage: 1 DF, 2X/DAY
  2. INEGY [Concomitant]
     Active Substance: EZETIMIBE\SIMVASTATIN
     Indication: BLOOD CHOLESTEROL
     Dates: start: 20191020
  3. HYDROCORTISONE SODIUM SUCCINATE [Suspect]
     Active Substance: HYDROCORTISONE SODIUM SUCCINATE
     Indication: INFLAMMATION

REACTIONS (7)
  - Rash macular [Unknown]
  - Anaphylactic shock [Unknown]
  - Dyspnoea [Unknown]
  - Dyspepsia [Unknown]
  - Swelling face [Unknown]
  - Swelling [Unknown]
  - Abdominal distension [Unknown]

NARRATIVE: CASE EVENT DATE: 20191009
